FAERS Safety Report 19006123 (Version 1)
Quarter: 2021Q1

REPORT INFORMATION
  Report Type: Spontaneous
  Country: US (occurrence: US)
  Receive Date: 20210314
  Receipt Date: 20210314
  Transmission Date: 20210420
  Serious: Yes (Other)
  Sender: FDA-Public Use
  Company Number: US-JNJFOC-20210314303

PATIENT
  Age: 23 Year
  Sex: Female

DRUGS (1)
  1. JBABY BABY POWDER UNSPECIFIED (ZINC OXIDE) [Suspect]
     Active Substance: ZINC OXIDE
     Indication: PRODUCT USED FOR UNKNOWN INDICATION
     Dosage: DAILY FOR 10 YEARS
     Route: 061

REACTIONS (3)
  - Exposure during pregnancy [Unknown]
  - Therapeutic response unexpected [Unknown]
  - Neoplasm malignant [Unknown]
